FAERS Safety Report 10039363 (Version 1)
Quarter: 2014Q1

REPORT INFORMATION
  Report Type: Spontaneous
  Country: GB (occurrence: GB)
  Receive Date: 20140326
  Receipt Date: 20140326
  Transmission Date: 20141002
  Serious: Yes (Hospitalization, Disabling)
  Sender: FDA-Public Use
  Company Number: GB-ASTRAZENECA-2014SE19355

PATIENT
  Sex: Female

DRUGS (10)
  1. QUETIAPINE [Suspect]
     Route: 048
  2. AMOXICILLIN [Concomitant]
  3. ATENOLOL [Concomitant]
  4. CODEINE [Concomitant]
  5. DIAZEPAM [Concomitant]
  6. DIFFLAM [Concomitant]
  7. LORAZEPAM [Concomitant]
  8. MIRTAZAPINE [Concomitant]
  9. MOVICOL [Concomitant]
  10. PARACETAMOL [Concomitant]

REACTIONS (6)
  - Gait disturbance [Recovered/Resolved]
  - Tongue movement disturbance [Recovered/Resolved]
  - Ballismus [Unknown]
  - Blepharospasm [Recovered/Resolved]
  - Tardive dyskinesia [Recovered/Resolved]
  - Movement disorder [Recovered/Resolved]
